FAERS Safety Report 6183177-X (Version None)
Quarter: 2009Q2

REPORT INFORMATION
  Report Type: 
  Country: None (occurrence: None)
  Receive Date: 20090507
  Receipt Date: 20090427
  Transmission Date: 20091009
  Serious: Yes (Other)
  Sender: FDA-Public Use
  Company Number: ES-JNJFOC-20090407003

PATIENT
  Sex: Female

DRUGS (11)
  1. REMINYL [Suspect]
     Route: 048
  2. REMINYL [Suspect]
     Route: 048
  3. REMINYL [Suspect]
     Route: 048
  4. REMINYL [Suspect]
     Indication: DEMENTIA
     Route: 048
  5. RISPERDAL [Suspect]
     Indication: DRUG USE FOR UNKNOWN INDICATION
     Route: 048
  6. ENALAPRIL MALEATE [Concomitant]
  7. ENALAPRIL MALEATE [Concomitant]
     Indication: BLOOD PRESSURE INCREASED
  8. IXIA [Concomitant]
     Indication: BLOOD PRESSURE INCREASED
  9. SEGURIL [Concomitant]
     Indication: BLOOD PRESSURE INCREASED
  10. ADIRO [Concomitant]
     Indication: DRUG USE FOR UNKNOWN INDICATION
  11. OMEPRAZOL [Concomitant]
     Indication: GASTROINTESTINAL DISORDER THERAPY

REACTIONS (7)
  - CEREBROVASCULAR ACCIDENT [None]
  - DIARRHOEA [None]
  - NERVOUSNESS [None]
  - PANCREATITIS [None]
  - RENAL FAILURE [None]
  - SYNCOPE [None]
  - WEIGHT DECREASED [None]
